FAERS Safety Report 18109044 (Version 3)
Quarter: 2021Q3

REPORT INFORMATION
  Report Type: Spontaneous
  Country: US (occurrence: US)
  Receive Date: 20200804
  Receipt Date: 20210722
  Transmission Date: 20211014
  Serious: No
  Sender: FDA-Public Use
  Company Number: US-PFIZER INC-2020294877

PATIENT
  Age: 69 Year
  Sex: Female

DRUGS (3)
  1. IBRANCE [Suspect]
     Active Substance: PALBOCICLIB
     Indication: BREAST CANCER FEMALE
     Dosage: 125 MG
     Dates: start: 20190826
  2. IBRANCE [Suspect]
     Active Substance: PALBOCICLIB
     Dosage: 125 MG, CYCLIC (DAILY FOR 21 DAYS ON,OFF 7 DAYS)
     Dates: start: 20200304
  3. IBRANCE [Suspect]
     Active Substance: PALBOCICLIB
     Dosage: 125 MG, DAILY [QD (EVERYDAY) X 21 DAYS]
     Dates: start: 20190830

REACTIONS (4)
  - Product dose omission issue [Not Recovered/Not Resolved]
  - Red blood cell count decreased [Unknown]
  - Fatigue [Unknown]
  - White blood cell count decreased [Unknown]
